FAERS Safety Report 5007687-3 (Version None)
Quarter: 2006Q2

REPORT INFORMATION
  Report Type: 
  Country: None (occurrence: None)
  Receive Date: 20060518
  Receipt Date: 20060503
  Transmission Date: 20061013
  Serious: Yes (Hospitalization)
  Sender: FDA-Public Use
  Company Number: 2006000860

PATIENT
  Age: 76 Year
  Sex: Female

DRUGS (6)
  1. TARCEVA [Suspect]
     Indication: LUNG ADENOCARCINOMA
     Dosage: SEE IMAGE, ORAL
     Route: 048
     Dates: start: 20060103, end: 20060202
  2. TARCEVA [Suspect]
     Indication: LUNG ADENOCARCINOMA
     Dosage: SEE IMAGE, ORAL
     Route: 048
     Dates: start: 20060203
  3. PREVISCAN (FLUINDIONE) [Suspect]
     Indication: PULMONARY EMBOLISM
     Dosage: ORAL
     Route: 048
     Dates: start: 20041001
  4. TARKA (UDRAMIL) [Concomitant]
  5. STABLON (TIANEPTINE) [Concomitant]
  6. LEXOMIL (BROMAZEPAM) [Concomitant]

REACTIONS (11)
  - ACNE [None]
  - COAGULOPATHY [None]
  - DRUG INTERACTION [None]
  - DRY SKIN [None]
  - HYPERTHYROIDISM [None]
  - INTERNATIONAL NORMALISED RATIO DECREASED [None]
  - INTERNATIONAL NORMALISED RATIO INCREASED [None]
  - PHLEBITIS [None]
  - PROTHROMBIN TIME PROLONGED [None]
  - PULMONARY EMBOLISM [None]
  - STOMATITIS [None]
